FAERS Safety Report 23235233 (Version 4)
Quarter: 2024Q4

REPORT INFORMATION
  Report Type: Spontaneous
  Country: US (occurrence: US)
  Receive Date: 20231128
  Receipt Date: 20241001
  Transmission Date: 20250114
  Serious: Yes (Hospitalization, Other)
  Sender: PFIZER
  Company Number: US-PFIZER INC-PV202300189009

PATIENT
  Age: 76 Year
  Sex: Male

DRUGS (46)
  1. RIFABUTIN [Interacting]
     Active Substance: RIFABUTIN
     Indication: Tuberculosis
     Dosage: 300 MG, DAILY
     Route: 048
     Dates: start: 20220310, end: 20220407
  2. RIFABUTIN [Interacting]
     Active Substance: RIFABUTIN
     Dosage: 450 MG, DAILY
     Route: 048
     Dates: start: 20220408, end: 20220617
  3. RIFABUTIN [Interacting]
     Active Substance: RIFABUTIN
     Dosage: 600 MG, DAILY
     Route: 048
     Dates: start: 20220618, end: 20220721
  4. EDOXABAN [Interacting]
     Active Substance: EDOXABAN
     Indication: Anticoagulant therapy
     Dosage: 60 MG, DAILY
     Route: 048
     Dates: start: 20220319, end: 20220605
  5. APIXABAN [Concomitant]
     Active Substance: APIXABAN
     Indication: Anticoagulant therapy
     Dosage: 5 MG, 2X/DAY
     Route: 048
     Dates: start: 20220225, end: 20220319
  6. ASPIRIN [Concomitant]
     Active Substance: ASPIRIN
     Indication: Anticoagulant therapy
     Dosage: 81 MG, DAILY
     Route: 048
     Dates: start: 20220225, end: 20220308
  7. DILTIAZEM [Concomitant]
     Active Substance: DILTIAZEM
     Dosage: 180 MG, DAILY
     Route: 048
     Dates: start: 20220225, end: 20220303
  8. DILTIAZEM [Concomitant]
     Active Substance: DILTIAZEM
     Dosage: 240 MG, DAILY
     Route: 048
     Dates: start: 20220304, end: 20220308
  9. BUDESONIDE [Concomitant]
     Active Substance: BUDESONIDE
     Dosage: 0.5 MG, 2X/DAY
     Route: 045
     Dates: start: 20220225, end: 20220421
  10. FORMOTEROL [Concomitant]
     Active Substance: FORMOTEROL
     Dosage: UNK
  11. ALBUTEROL\IPRATROPIUM [Concomitant]
     Active Substance: ALBUTEROL\IPRATROPIUM
     Dosage: 0.5-2.5 MG, 4X/DAY (EVERY 6 HOURS)
     Route: 045
     Dates: start: 20220225, end: 20220305
  12. ALBUTEROL\IPRATROPIUM [Concomitant]
     Active Substance: ALBUTEROL\IPRATROPIUM
     Dosage: 0.5-2.5 MG, 4X/DAY (EVERY 6 HOURS)
     Route: 045
     Dates: start: 20220421, end: 20220510
  13. ALBUTEROL\IPRATROPIUM [Concomitant]
     Active Substance: ALBUTEROL\IPRATROPIUM
     Dosage: 0.5-2.5 MG, 2X/DAY (EVERY 12 HOURS)
     Route: 045
     Dates: start: 20220510, end: 20220721
  14. ROFLUMILAST [Concomitant]
     Active Substance: ROFLUMILAST
     Dosage: 500 MG, DAILY
     Route: 048
     Dates: start: 20220228, end: 20220721
  15. PANTOPRAZOLE [Concomitant]
     Active Substance: PANTOPRAZOLE
     Dosage: 40 MG, DAILY
     Route: 048
     Dates: start: 20220226, end: 20220526
  16. PANTOPRAZOLE [Concomitant]
     Active Substance: PANTOPRAZOLE
     Dosage: 40 MG, DAILY
     Route: 048
     Dates: start: 20220623, end: 20220704
  17. PANTOPRAZOLE [Concomitant]
     Active Substance: PANTOPRAZOLE
     Dosage: 40 MG, 2X/DAY
     Route: 048
     Dates: start: 20220704, end: 20220721
  18. LINACLOTIDE [Concomitant]
     Active Substance: LINACLOTIDE
     Dosage: UNK
  19. ACETAMINOPHEN\HYDROCODONE [Concomitant]
     Active Substance: ACETAMINOPHEN\HYDROCODONE
     Dosage: 5-325 MG, 4X/DAY (EVERY 6 HOURS AS NEEDED)
     Route: 048
     Dates: start: 20220320, end: 20220721
  20. ONDANSETRON [Concomitant]
     Active Substance: ONDANSETRON
     Dosage: 4 MG, 3X/DAY (EVERY 8 HOURS AS NEEDED)
     Route: 042
     Dates: start: 20220316, end: 20220614
  21. ONDANSETRON [Concomitant]
     Active Substance: ONDANSETRON
     Dosage: 4 MG, 3X/DAY (EVERY 8 HOURS AS NEEDED)
     Route: 042
     Dates: start: 20220629, end: 20220721
  22. MIDODRINE [Concomitant]
     Active Substance: MIDODRINE
     Dosage: 2.5 MG, 2X/DAY
     Route: 048
     Dates: start: 20220225, end: 20220310
  23. FERROUS SULFATE [Concomitant]
     Active Substance: FERROUS SULFATE
     Dosage: 325 MG, ALTERNATE DAY (EVERY OTHER DAY)
     Route: 048
     Dates: start: 20220225, end: 20220522
  24. FERROUS SULFATE [Concomitant]
     Active Substance: FERROUS SULFATE
     Dosage: 325 MG, DAILY
     Route: 048
     Dates: start: 20220525, end: 20220721
  25. POTASSIUM CHLORIDE [Concomitant]
     Active Substance: POTASSIUM CHLORIDE
     Dosage: UNK
  26. CEFEPIME [Concomitant]
     Active Substance: CEFEPIME HYDROCHLORIDE
     Indication: Pneumonia bacterial
     Dosage: 2 G, 2X/DAY (EVERY 12 HOURS)
     Route: 042
     Dates: start: 20220225, end: 20220301
  27. CEFEPIME [Concomitant]
     Active Substance: CEFEPIME HYDROCHLORIDE
     Dosage: 2 G, 2X/DAY (EVERY 12 HOURS)
     Route: 042
     Dates: start: 20220512, end: 20220518
  28. DOXYCYCLINE [Concomitant]
     Active Substance: DOXYCYCLINE
     Indication: Pneumonia bacterial
     Dosage: UNK
  29. RIFAMPIN [Concomitant]
     Active Substance: RIFAMPIN
     Indication: Pulmonary tuberculosis
     Dosage: 600 MG, DAILY
     Route: 048
     Dates: start: 20220301, end: 20220309
  30. ETHAMBUTOL [Concomitant]
     Active Substance: ETHAMBUTOL HYDROCHLORIDE
     Indication: Pulmonary tuberculosis
     Dosage: 1200 MG, DAILY
     Route: 048
     Dates: start: 20220301, end: 20220721
  31. ISONIAZID [Concomitant]
     Active Substance: ISONIAZID
     Indication: Pulmonary tuberculosis
     Dosage: 300 MG, DAILY
     Route: 048
     Dates: start: 20220301, end: 20220721
  32. PYRAZINAMIDE [Concomitant]
     Active Substance: PYRAZINAMIDE
     Indication: Pulmonary tuberculosis
     Dosage: 1500 MG, DAILY
     Route: 048
     Dates: start: 20220301, end: 20220721
  33. MELATONIN [Concomitant]
     Active Substance: MELATONIN
     Dosage: 10 MG, 1X/DAY
     Route: 048
     Dates: start: 20220516, end: 20220521
  34. METOPROLOL SUCCINATE [Concomitant]
     Active Substance: METOPROLOL SUCCINATE
     Dosage: 100 MG, DAILY
     Route: 048
     Dates: start: 20220308, end: 20220401
  35. METOPROLOL SUCCINATE [Concomitant]
     Active Substance: METOPROLOL SUCCINATE
     Dosage: 50 MG, DAILY
     Route: 048
     Dates: start: 20220401, end: 20220512
  36. METOPROLOL SUCCINATE [Concomitant]
     Active Substance: METOPROLOL SUCCINATE
     Dosage: 25 MG, DAILY
     Route: 048
     Dates: start: 20220606, end: 20220608
  37. METOPROLOL SUCCINATE [Concomitant]
     Active Substance: METOPROLOL SUCCINATE
     Dosage: 12.5 MG, DAILY
     Route: 048
     Dates: start: 20220608, end: 20220721
  38. MIRTAZAPINE [Concomitant]
     Active Substance: MIRTAZAPINE
     Dosage: 7.5 MG AT BEDTIME
     Route: 048
     Dates: start: 20220417
  39. MIRTAZAPINE [Concomitant]
     Active Substance: MIRTAZAPINE
     Dosage: 15 MG
     Route: 048
     Dates: start: 20220418
  40. POLYETHYLENE GLYCOLS [Concomitant]
     Active Substance: POLYETHYLENE GLYCOLS
     Dosage: 17 G, DAILY
     Route: 048
     Dates: start: 20220308, end: 20220721
  41. PYRIDOXINE [Concomitant]
     Active Substance: PYRIDOXINE
     Dosage: 50 MG, DAILY
     Route: 048
     Dates: start: 20220301, end: 20220622
  42. PYRIDOXINE [Concomitant]
     Active Substance: PYRIDOXINE
     Dosage: 100 MG, DAILY
     Route: 048
     Dates: start: 20220623, end: 20220721
  43. HERBALS\SENNOSIDES [Concomitant]
     Active Substance: HERBALS\SENNOSIDES
     Dosage: 17 MG BEDTIME
     Route: 048
     Dates: start: 20220309, end: 20220321
  44. HERBALS\SENNOSIDES [Concomitant]
     Active Substance: HERBALS\SENNOSIDES
     Dosage: 17 MG BEDTIME
     Route: 048
     Dates: start: 20220329, end: 20220721
  45. TROLAMINE [Concomitant]
     Active Substance: TROLAMINE
     Dosage: APPLY CREAM THREE TIMES DAILY
     Route: 061
     Dates: start: 20220707, end: 20220717
  46. IOPAMIDOL [Concomitant]
     Active Substance: IOPAMIDOL
     Dosage: 100 ML INJECTED ONCE
     Route: 042
     Dates: start: 20220325, end: 20220511

REACTIONS (3)
  - Drug interaction [Unknown]
  - Deep vein thrombosis [Unknown]
  - Off label use [Unknown]

NARRATIVE: CASE EVENT DATE: 20220101
